FAERS Safety Report 10640669 (Version 3)
Quarter: 2014Q4

REPORT INFORMATION
  Report Type: Spontaneous
  Country: US (occurrence: None)
  Receive Date: 20141205
  Receipt Date: 20141222
  Transmission Date: 20150529
  Serious: Yes (Other)
  Sender: FDA-Public Use
  Company Number: 2014CFPI10838

PATIENT
  Age: 32 Year
  Sex: Male

DRUGS (1)
  1. TRISEPTIN [Suspect]
     Active Substance: ALCOHOL
     Dates: start: 20141112

REACTIONS (4)
  - Burns second degree [None]
  - Accidental exposure to product [None]
  - Blister [None]
  - Burns third degree [None]

NARRATIVE: CASE EVENT DATE: 20141112
